FAERS Safety Report 7900303-X (Version None)
Quarter: 2011Q4

REPORT INFORMATION
  Report Type: 
  Country: None (occurrence: None)
  Receive Date: 20111108
  Receipt Date: 20100519
  Transmission Date: 20120403
  Serious: No
  Sender: FDA-Public Use
  Company Number: US-BAYER-201023736NA

PATIENT
  Age: 56 Year
  Sex: Female

DRUGS (6)
  1. CRANBERRY [Concomitant]
     Dosage: UNK
  2. DIFLUCAN [Suspect]
     Dosage: 1 DF, ONCE
     Route: 048
     Dates: start: 20100501
  3. CLIMARA [Suspect]
     Dosage: 0.05 MG, QD
     Route: 062
     Dates: start: 20060101
  4. DIFLUCAN [Suspect]
     Indication: FUNGAL INFECTION
     Dosage: UNK
     Route: 048
     Dates: start: 20100301
  5. RESTASIS [Concomitant]
     Dosage: 1 GTT, UNK PER EYE
     Route: 047
  6. CLIMARA [Suspect]
     Dosage: 0.1 MG, QD
     Route: 062

REACTIONS (2)
  - DYSURIA [None]
  - VULVOVAGINAL PAIN [None]
